FAERS Safety Report 7391060-7 (Version None)
Quarter: 2011Q2

REPORT INFORMATION
  Report Type: 
  Country: None (occurrence: None)
  Receive Date: 20110404
  Receipt Date: 20110324
  Transmission Date: 20111010
  Serious: Yes (Other)
  Sender: FDA-Public Use
  Company Number: FR-JNJFOC-20110310995

PATIENT
  Sex: Female

DRUGS (3)
  1. ONDANSETRON [Concomitant]
     Indication: PRODUCT USED FOR UNKNOWN INDICATION
     Route: 065
  2. DEXAMETHASONE [Concomitant]
     Indication: PRODUCT USED FOR UNKNOWN INDICATION
     Route: 065
  3. CAELYX [Suspect]
     Indication: OVARIAN CANCER
     Route: 065
     Dates: start: 20101028, end: 20101221

REACTIONS (2)
  - SKIN TOXICITY [None]
  - RASH MORBILLIFORM [None]
